FAERS Safety Report 6572000-7 (Version None)
Quarter: 2010Q1

REPORT INFORMATION
  Report Type: 
  Country: None (occurrence: None)
  Receive Date: 20100201
  Receipt Date: 20100126
  Transmission Date: 20100710
  Serious: Yes (Hospitalization)
  Sender: FDA-Public Use
  Company Number: TPA2010A00334

PATIENT
  Sex: Female

DRUGS (1)
  1. PREVACID [Suspect]
     Indication: DYSPEPSIA
     Dosage: PER ORAL
     Route: 048

REACTIONS (1)
  - ARTERIOSCLEROSIS [None]
